FAERS Safety Report 24407538 (Version 2)
Quarter: 2024Q4

REPORT INFORMATION
  Report Type: Spontaneous
  Country: RO (occurrence: RO)
  Receive Date: 20241007
  Receipt Date: 20241106
  Transmission Date: 20250115
  Serious: Yes (Other)
  Sender: ALEXION PHARMACEUTICALS
  Company Number: RO-ASTRAZENECA-202409GLO007862RO

PATIENT
  Age: 73 Year

DRUGS (6)
  1. CASODEX [Suspect]
     Active Substance: BICALUTAMIDE
     Indication: Prostatic mass
     Dosage: UNK
     Route: 065
  2. CASODEX [Suspect]
     Active Substance: BICALUTAMIDE
     Dosage: UNK
  3. CASODEX [Suspect]
     Active Substance: BICALUTAMIDE
     Dosage: UNK
     Route: 065
  4. CASODEX [Suspect]
     Active Substance: BICALUTAMIDE
     Dosage: UNK
  5. CAPECITABINE\OXALIPLATIN [Suspect]
     Active Substance: CAPECITABINE\OXALIPLATIN
     Indication: Neoadjuvant therapy
  6. CAPECITABINE\OXALIPLATIN [Suspect]
     Active Substance: CAPECITABINE\OXALIPLATIN
     Route: 065

REACTIONS (1)
  - Liver function test increased [Recovered/Resolved]
